FAERS Safety Report 6452827-2 (Version None)
Quarter: 2009Q4

REPORT INFORMATION
  Report Type: 
  Country: None (occurrence: None)
  Receive Date: 20091117
  Receipt Date: 20091028
  Transmission Date: 20100525
  Serious: Yes (Other)
  Sender: FDA-Public Use
  Company Number: 2009S1000337-002

PATIENT
  Age: 68 Year
  Sex: Female

DRUGS (4)
  1. PITAVASTATIN CALCIUM [Suspect]
     Indication: HYPERCHOLESTEROLAEMIA
     Dosage: 2MG PO
     Route: 048
     Dates: start: 20090805, end: 20091006
  2. URSODESOXYCHOLIC ACID [Concomitant]
  3. PHENYTOIN [Concomitant]
  4. CLOSTRIDIUM BUTYRICUM [Concomitant]

REACTIONS (5)
  - ALANINE AMINOTRANSFERASE INCREASED [None]
  - ASPARTATE AMINOTRANSFERASE INCREASED [None]
  - BLOOD LACTATE DEHYDROGENASE INCREASED [None]
  - GAMMA-GLUTAMYLTRANSFERASE INCREASED [None]
  - HEPATITIS A POSITIVE [None]
